FAERS Safety Report 4806730-1 (Version None)
Quarter: 2005Q4

REPORT INFORMATION
  Report Type: 
  Country: None (occurrence: None)
  Receive Date: 20051019
  Receipt Date: 20051013
  Transmission Date: 20060501
  Serious: Yes (Hospitalization, Other)
  Sender: FDA-Public Use
  Company Number: GBWYE916418AUG05

PATIENT
  Age: 41 Year
  Sex: Female

DRUGS (2)
  1. EFFEXOR XR [Suspect]
     Indication: IRRITABLE BOWEL SYNDROME
     Dosage: 75 MG 1X PER 1 DAY ORAL
     Route: 048
     Dates: start: 20050617, end: 20050716
  2. ALCOHOL (ETHANOL) [Suspect]

REACTIONS (5)
  - ALCOHOL USE [None]
  - BLOOD BILIRUBIN INCREASED [None]
  - HAEMATEMESIS [None]
  - MALLORY-WEISS SYNDROME [None]
  - URINARY TRACT INFECTION [None]
